FAERS Safety Report 15206981 (Version 1)
Quarter: 2018Q3

REPORT INFORMATION
  Report Type: Spontaneous
  Country: MK (occurrence: MK)
  Receive Date: 20180727
  Receipt Date: 20180727
  Transmission Date: 20181010
  Serious: Yes (Life-Threatening)
  Sender: FDA-Public Use
  Company Number: MK-B.I. PHARMACEUTICALS,INC./RIDGEFIELD-2018-BI-038099

PATIENT
  Age: 64 Year
  Sex: Female

DRUGS (1)
  1. MOVALIS [Suspect]
     Active Substance: MELOXICAM
     Indication: BACK PAIN
     Route: 030
     Dates: start: 20180605, end: 20180608

REACTIONS (2)
  - Choking [Unknown]
  - Hypotension [Unknown]

NARRATIVE: CASE EVENT DATE: 20180605
